FAERS Safety Report 5218278-3 (Version None)
Quarter: 2007Q1

REPORT INFORMATION
  Report Type: 
  Country: None (occurrence: None)
  Receive Date: 20070124
  Receipt Date: 20070119
  Transmission Date: 20070707
  Serious: Yes (Other)
  Sender: FDA-Public Use
  Company Number: JP-PFIZER INC-2006148194

PATIENT
  Age: 66 Year
  Sex: Male

DRUGS (8)
  1. LIPITOR [Suspect]
     Indication: HYPERCHOLESTEROLAEMIA
     Dosage: DAILY DOSE:10MG
     Route: 048
     Dates: start: 20060701, end: 20060725
  2. OMEPRAL [Suspect]
     Dosage: DAILY DOSE:20MG
     Route: 048
  3. ASPIRIN [Suspect]
     Route: 048
  4. PHENOBARBITAL TAB [Suspect]
     Dosage: DAILY DOSE:100MG
     Route: 048
  5. PLETAL [Suspect]
     Dosage: DAILY DOSE:100MG
     Route: 048
  6. GASTER [Concomitant]
  7. ARTIST [Concomitant]
     Route: 048
  8. NORVASC [Concomitant]
     Route: 048

REACTIONS (2)
  - CARDIAC OPERATION [None]
  - HEPATIC FUNCTION ABNORMAL [None]
